FAERS Safety Report 8356986-6 (Version None)
Quarter: 2012Q2

REPORT INFORMATION
  Report Type: 
  Country: None (occurrence: None)
  Receive Date: 20120510
  Receipt Date: 20120501
  Transmission Date: 20120825
  Serious: Yes (Hospitalization, Other)
  Sender: FDA-Public Use
  Company Number: 2012SP018351

PATIENT
  Age: 24 Year
  Sex: Female

DRUGS (1)
  1. IMPLANON [Suspect]
     Indication: CONTRACEPTION
     Dosage: 1 DF;SBDE
     Route: 059
     Dates: start: 20100624, end: 20120306

REACTIONS (13)
  - HEADACHE [None]
  - DEPRESSION [None]
  - DYSMENORRHOEA [None]
  - SLEEP DISORDER [None]
  - ANXIETY [None]
  - MOOD SWINGS [None]
  - PANIC ATTACK [None]
  - ELECTROLYTE IMBALANCE [None]
  - AGORAPHOBIA [None]
  - PARANOIA [None]
  - ASTHENIA [None]
  - FEAR [None]
  - WEIGHT DECREASED [None]
